FAERS Safety Report 12093229 (Version 1)
Quarter: 2016Q1

REPORT INFORMATION
  Report Type: Spontaneous
  Country: CA (occurrence: CA)
  Receive Date: 20160219
  Receipt Date: 20160219
  Transmission Date: 20160526
  Serious: Yes (Other)
  Sender: FDA-Public Use
  Company Number: CA-APOTEX-2016AP006435

PATIENT
  Age: 12 Year
  Sex: Female

DRUGS (1)
  1. APO-CYCLOSPORINE ORAL SOLUTION [Suspect]
     Active Substance: CYCLOSPORINE
     Indication: MUCOPOLYSACCHARIDOSIS I
     Dosage: 3 MG/KG/DAY
     Route: 048

REACTIONS (1)
  - Sweat gland tumour [Unknown]
